FAERS Safety Report 21690179 (Version 1)
Quarter: 2022Q4

REPORT INFORMATION
  Report Type: Spontaneous
  Country: CA (occurrence: CA)
  Receive Date: 20221206
  Receipt Date: 20221206
  Transmission Date: 20230112
  Serious: Yes (Hospitalization)
  Sender: FDA-Public Use
  Company Number: CA-ALLERGAN-2239985US

PATIENT
  Sex: Female
  Weight: 54 kg

DRUGS (9)
  1. ACTONEL [Suspect]
     Active Substance: RISEDRONATE SODIUM
     Indication: Osteoporosis
     Dosage: 35 MG, Q WEEK
     Route: 048
  2. AMLODIPINE [Concomitant]
     Active Substance: AMLODIPINE BESYLATE
  3. MIRTAZAPINE [Concomitant]
     Active Substance: MIRTAZAPINE
  4. RISPERIDONE [Concomitant]
     Active Substance: RISPERIDONE
  5. VITAMIN D [Concomitant]
     Active Substance: VITAMIN D NOS
  6. SERTRALINE [Concomitant]
     Active Substance: SERTRALINE HYDROCHLORIDE
  7. OXAZEPAM [Concomitant]
     Active Substance: OXAZEPAM
  8. LETROZOLE [Concomitant]
     Active Substance: LETROZOLE
  9. CALCIUM CARBONATE [Concomitant]
     Active Substance: CALCIUM CARBONATE

REACTIONS (1)
  - Upper gastrointestinal haemorrhage [Recovered/Resolved]
